FAERS Safety Report 5484545-1 (Version None)
Quarter: 2007Q4

REPORT INFORMATION
  Report Type: 
  Country: None (occurrence: None)
  Receive Date: 20071012
  Receipt Date: 20071005
  Transmission Date: 20080405
  Serious: Yes (Other)
  Sender: FDA-Public Use
  Company Number: SE-PFIZER INC-2007083511

PATIENT
  Age: 34 Year
  Sex: Female

DRUGS (2)
  1. ZELDOX (CAPSULES) [Suspect]
     Route: 048
  2. FLUOXETINE [Concomitant]

REACTIONS (5)
  - DISABILITY [None]
  - MUSCLE SPASMS [None]
  - NECK PAIN [None]
  - TARDIVE DYSKINESIA [None]
  - VOMITING [None]
